FAERS Safety Report 8817387 (Version 1)
Quarter: 2012Q4

REPORT INFORMATION
  Report Type: 
  Country: CA (occurrence: CA)
  Receive Date: 20121004
  Receipt Date: 20121004
  Transmission Date: 20130627
  Serious: Yes (Other)
  Sender: FDA-Public Use
  Company Number: CA-PFIZER INC-2012245290

PATIENT
  Sex: Male

DRUGS (1)
  1. CHAMPIX [Suspect]

REACTIONS (1)
  - Deep vein thrombosis [Unknown]
